FAERS Safety Report 26099166 (Version 1)
Quarter: 2025Q4

REPORT INFORMATION
  Report Type: Spontaneous
  Country: US (occurrence: US)
  Receive Date: 20251128
  Receipt Date: 20251128
  Transmission Date: 20260117
  Serious: No
  Sender: UNICHEM
  Company Number: US-UNICHEM LABORATORIES LIMITED-UCM202410-001410

PATIENT

DRUGS (1)
  1. AMLODIPINE [Suspect]
     Active Substance: AMLODIPINE BESYLATE
     Indication: Hypertension
     Dosage: 2.5,MILLIGRAM,QD
     Dates: start: 20240817, end: 20240901

REACTIONS (8)
  - Decreased appetite [Unknown]
  - Vertigo [Unknown]
  - Illness [Unknown]
  - Dizziness [Not Recovered/Not Resolved]
  - Impaired driving ability [Unknown]
  - Nausea [Unknown]
  - Therapeutic response changed [Unknown]
  - Product substitution issue [Unknown]

NARRATIVE: CASE EVENT DATE: 20240817
